FAERS Safety Report 17596993 (Version 1)
Quarter: 2020Q1

REPORT INFORMATION
  Report Type: Spontaneous
  Country: FR (occurrence: FR)
  Receive Date: 20200330
  Receipt Date: 20200330
  Transmission Date: 20200409
  Serious: Yes (Congenital Anomaly)
  Sender: FDA-Public Use
  Company Number: FR-TEVA-2020-FR-1212114

PATIENT
  Age: 61 Year
  Sex: Male

DRUGS (2)
  1. ALIMTA [Suspect]
     Active Substance: PEMETREXED DISODIUM
     Indication: NEOPLASM MALIGNANT
     Dosage: 1 DOSAGE FORMS
     Route: 042
     Dates: start: 2016
  2. CARBOPLATINE [Suspect]
     Active Substance: CARBOPLATIN
     Indication: NEOPLASM MALIGNANT
     Dosage: 1  DOSAGE FORMS
     Route: 042
     Dates: start: 2016

REACTIONS (1)
  - Dent^s disease [Not Recovered/Not Resolved]

NARRATIVE: CASE EVENT DATE: 2016
